FAERS Safety Report 7454005-7 (Version None)
Quarter: 2011Q2

REPORT INFORMATION
  Report Type: 
  Country: None (occurrence: None)
  Receive Date: 20110502
  Receipt Date: 20110323
  Transmission Date: 20111010
  Serious: No
  Sender: FDA-Public Use
  Company Number: US-BAYER-2011-025828

PATIENT
  Age: 65 Year
  Sex: Male

DRUGS (12)
  1. CARVEDILOL [Concomitant]
     Dosage: 25 MG, BID
  2. LISINOPRIL [Concomitant]
  3. OYSTER SHELL CALCIUM [CALCIUM] [Concomitant]
  4. RANEXA [Concomitant]
  5. ASPIRIN [Concomitant]
  6. SIMVASTATIN [Concomitant]
  7. PREDNISONE [Concomitant]
  8. ISOSORBIDE DINITRATE [Concomitant]
  9. AMLODIPINE [Concomitant]
  10. NIASPAN [Concomitant]
  11. AVELOX [Suspect]
     Indication: NASOPHARYNGITIS
     Dosage: UNK
     Dates: start: 20110301
  12. PLAVIX [Concomitant]

REACTIONS (1)
  - DYSPHAGIA [None]
